FAERS Safety Report 6100433-1 (Version None)
Quarter: 2009Q1

REPORT INFORMATION
  Report Type: 
  Country: None (occurrence: None)
  Receive Date: 20090303
  Receipt Date: 20090223
  Transmission Date: 20090719
  Serious: Yes (Hospitalization)
  Sender: FDA-Public Use
  Company Number: US-JNJFOC-20090203976

PATIENT
  Sex: Female
  Weight: 52.1 kg

DRUGS (11)
  1. INFLIXIMAB [Suspect]
     Route: 042
  2. INFLIXIMAB [Suspect]
     Indication: CROHN'S DISEASE
     Route: 042
  3. ANTIBIOTICS [Concomitant]
     Indication: INFLAMMATORY BOWEL DISEASE
  4. METHOTREXATE [Concomitant]
  5. CELEXA [Concomitant]
  6. PREDNISONE [Concomitant]
  7. PREVACID [Concomitant]
  8. FOLATE [Concomitant]
  9. HUMIRA [Concomitant]
  10. HUMIRA [Concomitant]
  11. IRON [Concomitant]

REACTIONS (1)
  - CROHN'S DISEASE [None]
